FAERS Safety Report 19885337 (Version 2)
Quarter: 2021Q4

REPORT INFORMATION
  Report Type: Spontaneous
  Country: JP (occurrence: JP)
  Receive Date: 20210927
  Receipt Date: 20211109
  Transmission Date: 20220303
  Serious: Yes (Death, Hospitalization, Other)
  Sender: FDA-Public Use
  Company Number: JP-SA-SAC20210923000075

PATIENT
  Sex: Male
  Weight: 59.4 kg

DRUGS (13)
  1. OXALIPLATIN [Suspect]
     Active Substance: OXALIPLATIN
     Indication: Colorectal cancer
     Dosage: INJECTION ONCE IN 2WEEKS
     Route: 041
  2. OXALIPLATIN [Suspect]
     Active Substance: OXALIPLATIN
     Indication: Rectal cancer
  3. LEVOLEUCOVORIN CALCIUM [Suspect]
     Active Substance: LEVOLEUCOVORIN CALCIUM
     Indication: Colorectal cancer
     Dosage: UNK
  4. LEVOLEUCOVORIN CALCIUM [Suspect]
     Active Substance: LEVOLEUCOVORIN CALCIUM
     Indication: Rectal cancer
  5. FLUOROURACIL [Suspect]
     Active Substance: FLUOROURACIL
     Indication: Colorectal cancer
     Dosage: UNK
  6. FLUOROURACIL [Suspect]
     Active Substance: FLUOROURACIL
     Indication: Rectal cancer
  7. BEVACIZUMAB [Suspect]
     Active Substance: BEVACIZUMAB
     Indication: Colorectal cancer
     Dosage: UNK
  8. BEVACIZUMAB [Suspect]
     Active Substance: BEVACIZUMAB
     Indication: Rectal cancer
  9. RABEPRAZOLE SODIUM [Concomitant]
     Active Substance: RABEPRAZOLE SODIUM
     Dosage: 10 MG
  10. OXYCODONE [Concomitant]
     Active Substance: OXYCODONE
     Dosage: 2.5 MG
     Route: 048
  11. SPIRONOLACTONE [Concomitant]
     Active Substance: SPIRONOLACTONE
     Dosage: 50 MG
     Route: 048
  12. FUROSEMIDE [Concomitant]
     Active Substance: FUROSEMIDE
     Dosage: 30 MG
     Route: 048
  13. FENTANYL [Concomitant]
     Active Substance: FENTANYL
     Dosage: 1 MG

REACTIONS (18)
  - Gastric varices [Fatal]
  - Gastric varices haemorrhage [Fatal]
  - Ascites [Fatal]
  - Abdominal distension [Fatal]
  - Portal hypertension [Fatal]
  - Disseminated intravascular coagulation [Fatal]
  - Thrombocytopenia [Fatal]
  - Anaemia [Fatal]
  - Feeling abnormal [Fatal]
  - Faeces discoloured [Fatal]
  - Oedema peripheral [Fatal]
  - Condition aggravated [Fatal]
  - Hepatic failure [Fatal]
  - Metastases to liver [Fatal]
  - Disease progression [Fatal]
  - Respiratory failure [Fatal]
  - Dyspnoea [Fatal]
  - Renal impairment [Fatal]
